FAERS Safety Report 9378451 (Version 3)
Quarter: 2013Q3

REPORT INFORMATION
  Report Type: Spontaneous
  Country: US (occurrence: US)
  Receive Date: 20130701
  Receipt Date: 20130720
  Transmission Date: 20140515
  Serious: Yes (Hospitalization, Other)
  Sender: FDA-Public Use
  Company Number: US-JNJFOC-20130409376

PATIENT
  Age: 57 Year
  Sex: Female
  Weight: 101.61 kg

DRUGS (8)
  1. ZYRTEC IR [Suspect]
     Indication: ECZEMA
     Route: 048
     Dates: start: 201003
  2. ZYRTEC IR [Suspect]
     Indication: MULTIPLE ALLERGIES
     Route: 048
     Dates: start: 201003
  3. ADVAIR [Concomitant]
     Indication: ASTHMA
     Dosage: 2 PUFFS
     Route: 065
  4. FLONASE [Concomitant]
     Indication: RHINITIS ALLERGIC
     Route: 045
  5. STEROIDS NOS [Concomitant]
     Indication: ECZEMA
     Route: 065
  6. SINGULAIR [Concomitant]
     Indication: ASTHMA
     Route: 048
  7. ALBUTEROL [Concomitant]
     Indication: ASTHMA
     Dosage: 2 PUFFS AS NEEDED EVERY 4 HOURS
     Route: 065
  8. PREVACID [Concomitant]
     Indication: RASH
     Route: 065

REACTIONS (10)
  - Fungal skin infection [Not Recovered/Not Resolved]
  - Infection [Not Recovered/Not Resolved]
  - Eczema [Not Recovered/Not Resolved]
  - Dyspnoea [Not Recovered/Not Resolved]
  - Drug hypersensitivity [Not Recovered/Not Resolved]
  - Therapeutic response increased [Unknown]
  - Off label use [Unknown]
  - Feeling abnormal [Recovering/Resolving]
  - Agitation [Recovering/Resolving]
  - Overdose [Unknown]
